FAERS Safety Report 9222026 (Version 2)
Quarter: 2013Q2

REPORT INFORMATION
  Report Type: Spontaneous
  Country: US (occurrence: US)
  Receive Date: 20130410
  Receipt Date: 20130610
  Transmission Date: 20140414
  Serious: No
  Sender: FDA-Public Use
  Company Number: US-PFIZER INC-2013108359

PATIENT
  Sex: Female

DRUGS (3)
  1. CELEBREX [Suspect]
     Dosage: UNK
  2. LYRICA [Suspect]
     Dosage: UNK
  3. SPIRIVA [Suspect]
     Dosage: UNK

REACTIONS (3)
  - Dysphonia [Unknown]
  - Hypersensitivity [Unknown]
  - Sinusitis [Unknown]
